FAERS Safety Report 16368226 (Version 1)
Quarter: 2019Q2

REPORT INFORMATION
  Report Type: Spontaneous
  Country: US (occurrence: US)
  Receive Date: 20190529
  Receipt Date: 20190529
  Transmission Date: 20190711
  Serious: Yes (Hospitalization)
  Sender: FDA-Public Use
  Company Number: US-VERTEX PHARMACEUTICALS-2019-004860

PATIENT
  Sex: Male

DRUGS (6)
  1. SODIUM CHLORIDE. [Concomitant]
     Active Substance: SODIUM CHLORIDE
  2. TOBI [Concomitant]
     Active Substance: TOBRAMYCIN
  3. DEKA [Concomitant]
  4. SYMDEKO [Suspect]
     Active Substance: IVACAFTOR\TEZACAFTOR
     Indication: CYSTIC FIBROSIS
     Dosage: 1 YELLOW TABLET (TEZACAFTOR 100MG /IVACAFTOR150MG), AM; 1 BLUE TABLET (IVACAFTOR 150MG), PM
     Route: 048
     Dates: start: 201803
  5. STERILE WATER [Concomitant]
     Active Substance: WATER
  6. COLISTIMETHATE                     /00013204/ [Concomitant]
     Active Substance: COLISTIMETHATE SODIUM

REACTIONS (1)
  - Hospitalisation [Not Recovered/Not Resolved]

NARRATIVE: CASE EVENT DATE: 2019
